FAERS Safety Report 10085454 (Version 1)
Quarter: 2014Q2

REPORT INFORMATION
  Report Type: Spontaneous
  Country: US (occurrence: US)
  Receive Date: 20140418
  Receipt Date: 20140418
  Transmission Date: 20141212
  Serious: Yes (Other)
  Sender: FDA-Public Use
  Company Number: US-BIOGENIDEC-2014BI036316

PATIENT
  Sex: Female
  Weight: 68 kg

DRUGS (7)
  1. AVONEX [Suspect]
     Indication: MULTIPLE SCLEROSIS
     Route: 030
     Dates: start: 19970601, end: 2005
  2. AVONEX [Suspect]
     Indication: MULTIPLE SCLEROSIS
     Route: 030
     Dates: start: 20121116, end: 201307
  3. AMANTADINE [Concomitant]
     Indication: FATIGUE
  4. ATACAND [Concomitant]
  5. ASPIRIN [Concomitant]
  6. CRESTOR [Concomitant]
  7. VITAMIN D [Concomitant]

REACTIONS (11)
  - Hysterectomy [Unknown]
  - Gallbladder disorder [Unknown]
  - Phobia [Unknown]
  - Hypertension [Unknown]
  - Hyperlipidaemia [Unknown]
  - Migraine [Unknown]
  - Chronic sinusitis [Not Recovered/Not Resolved]
  - Intervertebral disc protrusion [Unknown]
  - Vertebral osteophyte [Unknown]
  - Spondyloarthropathy [Unknown]
  - Hepatic enzyme increased [Unknown]
